FAERS Safety Report 22059063 (Version 1)
Quarter: 2023Q1

REPORT INFORMATION
  Report Type: Other
  Country: FR (occurrence: FR)
  Receive Date: 20230303
  Receipt Date: 20230303
  Transmission Date: 20230417
  Serious: Yes (Other)
  Sender: FDA-Public Use
  Company Number: FR-PIERREL S.P.A.-2023PIR00009

PATIENT
  Age: 50 Year
  Sex: Male

DRUGS (1)
  1. ARTICAINE\EPINEPHRINE [Suspect]
     Active Substance: ARTICAINE\EPINEPHRINE
     Indication: Anaesthesia
     Dosage: 1 INJECTION INTRA-GENGIVALE
     Route: 002
     Dates: start: 20230202, end: 20230202

REACTIONS (1)
  - Generalised tonic-clonic seizure [Recovered/Resolved]

NARRATIVE: CASE EVENT DATE: 20230202
